FAERS Safety Report 4882896-2 (Version None)
Quarter: 2006Q1

REPORT INFORMATION
  Report Type: 
  Country: None (occurrence: None)
  Receive Date: 20060118
  Receipt Date: 20060110
  Transmission Date: 20060701
  Serious: Yes (Death, Other)
  Sender: FDA-Public Use
  Company Number: US-JNJFOC-20060101763

PATIENT
  Age: 17 Year
  Sex: Female

DRUGS (26)
  1. INFLIXIMAB [Suspect]
     Dosage: 20 DOSES OVER 29 MONTHS
     Route: 042
  2. INFLIXIMAB [Suspect]
     Dosage: 20 DOSES OVER 29 MONTHS
     Route: 042
  3. INFLIXIMAB [Suspect]
     Dosage: 20 DOSES OVER 29 MONTHS
     Route: 042
  4. INFLIXIMAB [Suspect]
     Dosage: 20 DOSES OVER 29 MONTHS
     Route: 042
  5. INFLIXIMAB [Suspect]
     Dosage: 20 DOSES OVER 29 MONTHS
     Route: 042
  6. INFLIXIMAB [Suspect]
     Dosage: 20 DOSES OVER 29 MONTHS
     Route: 042
  7. INFLIXIMAB [Suspect]
     Dosage: 20 DOSES OVER 29 MONTHS
     Route: 042
  8. INFLIXIMAB [Suspect]
     Dosage: 20 DOSES OVER 29 MONTHS
     Route: 042
  9. INFLIXIMAB [Suspect]
     Dosage: 20 DOSES OVER 29 MONTHS
     Route: 042
  10. INFLIXIMAB [Suspect]
     Dosage: 20 DOSES OVER 29 MONTHS
     Route: 042
  11. INFLIXIMAB [Suspect]
     Dosage: 20 DOSES OVER 29 MONTHS
     Route: 042
  12. INFLIXIMAB [Suspect]
     Dosage: 20 DOSES OVER 29 MONTHS
     Route: 042
  13. INFLIXIMAB [Suspect]
     Dosage: 20 DOSES OVER 29 MONTHS
     Route: 042
  14. INFLIXIMAB [Suspect]
     Dosage: 20 DOSES OVER 29 MONTHS
     Route: 042
  15. INFLIXIMAB [Suspect]
     Dosage: 20 DOSES OVER 29 MONTHS
     Route: 042
  16. INFLIXIMAB [Suspect]
     Dosage: 20 DOSES OVER 29 MONTHS
     Route: 042
  17. INFLIXIMAB [Suspect]
     Dosage: 20 DOSES OVER 29 MONTHS
     Route: 042
  18. INFLIXIMAB [Suspect]
     Dosage: 20 DOSES OVER 29 MONTHS
     Route: 042
  19. INFLIXIMAB [Suspect]
     Dosage: 20 DOSES OVER 29 MONTHS
     Route: 042
  20. INFLIXIMAB [Suspect]
     Indication: CROHN'S DISEASE
     Dosage: 20 DOSES OVER 29 MONTHS
     Route: 042
  21. MESALAMINE [Suspect]
  22. MESALAMINE [Suspect]
     Indication: CROHN'S DISEASE
  23. MERCAPTOPURINE [Suspect]
     Indication: CROHN'S DISEASE
     Dosage: 50-75 MG DAILY
  24. HYDROCORTISONE [Concomitant]
  25. METRONIDAZOLE [Concomitant]
  26. PREDNISONE [Concomitant]

REACTIONS (6)
  - AUTOIMMUNE HEPATITIS [None]
  - DEATH [None]
  - HEPATOSPLENOMEGALY [None]
  - PANCYTOPENIA [None]
  - SEPSIS [None]
  - T-CELL LYMPHOMA [None]
